FAERS Safety Report 12569326 (Version 3)
Quarter: 2016Q4

REPORT INFORMATION
  Report Type: Report from Study
  Country: BR (occurrence: BR)
  Receive Date: 20160719
  Receipt Date: 20161007
  Transmission Date: 20170207
  Serious: Yes (Hospitalization, Other)
  Sender: FDA-Public Use
  Company Number: PHHY2015BR157229

PATIENT
  Age: 53 Year
  Sex: Female
  Weight: 56 kg

DRUGS (9)
  1. EXJADE [Suspect]
     Active Substance: DEFERASIROX
     Indication: THALASSAEMIA
     Dosage: 10 MG/KG (500 MG), QD
     Route: 048
     Dates: start: 201511, end: 20160802
  2. VENALOT (COUMARIN) [Concomitant]
     Indication: CARDIOVASCULAR DISORDER
     Dosage: 100 MG, QD
     Route: 048
  3. PREGABALIN. [Concomitant]
     Active Substance: PREGABALIN
     Indication: FIBROMYALGIA
     Dosage: 75 MG, QD
     Route: 048
  4. VENALOT (COUMARIN) [Concomitant]
     Indication: SKIN ULCER
  5. NORTRIPTYLINE [Concomitant]
     Active Substance: NORTRIPTYLINE
     Indication: FIBROMYALGIA
  6. ASA [Concomitant]
     Active Substance: ASPIRIN
     Indication: CARDIOVASCULAR DISORDER
     Dosage: UNK UNK, QD
     Route: 048
  7. HIDROXIUREA [Concomitant]
     Active Substance: HYDROXYUREA
     Indication: THALASSAEMIA
     Dosage: 500 MG, QD
     Route: 048
  8. FOLIC ACID. [Concomitant]
     Active Substance: FOLIC ACID
     Indication: THALASSAEMIA
     Dosage: 1 DF, QD
     Route: 048
  9. NORTRIPTYLINE [Concomitant]
     Active Substance: NORTRIPTYLINE
     Indication: ANXIETY
     Dosage: 25 MG, QD
     Route: 048

REACTIONS (25)
  - Nausea [Unknown]
  - Pain in extremity [Not Recovered/Not Resolved]
  - Haemoglobin decreased [Recovering/Resolving]
  - Decreased appetite [Unknown]
  - Pain [Not Recovered/Not Resolved]
  - Dyspnoea [Not Recovered/Not Resolved]
  - Retching [Recovered/Resolved]
  - Arrhythmia [Not Recovered/Not Resolved]
  - Hypoaesthesia [Not Recovered/Not Resolved]
  - Fatigue [Not Recovered/Not Resolved]
  - Dysstasia [Unknown]
  - Weight decreased [Not Recovered/Not Resolved]
  - Skin ulcer [Unknown]
  - Platelet count decreased [Unknown]
  - Asthenia [Not Recovered/Not Resolved]
  - Weight fluctuation [Not Recovered/Not Resolved]
  - Blood iron increased [Not Recovered/Not Resolved]
  - Heart rate increased [Not Recovered/Not Resolved]
  - Back pain [Unknown]
  - Malaise [Not Recovered/Not Resolved]
  - Cardiac disorder [Not Recovered/Not Resolved]
  - Pseudomonas test positive [Unknown]
  - Chest pain [Not Recovered/Not Resolved]
  - White blood cell count decreased [Unknown]
  - Cough [Not Recovered/Not Resolved]

NARRATIVE: CASE EVENT DATE: 201511
